FAERS Safety Report 8246395-2 (Version None)
Quarter: 2012Q1

REPORT INFORMATION
  Report Type: 
  Country: None (occurrence: None)
  Receive Date: 20120329
  Receipt Date: 20120329
  Transmission Date: 20120608
  Serious: Yes (Hospitalization)
  Sender: FDA-Public Use
  Company Number: None

PATIENT
  Sex: Female
  Weight: 52.6 kg

DRUGS (2)
  1. CARBOPLATIN [Suspect]
     Dosage: 562 MG
  2. TAXOL [Suspect]
     Dosage: 140 MG

REACTIONS (6)
  - BLOOD POTASSIUM DECREASED [None]
  - DIARRHOEA [None]
  - URINE OUTPUT DECREASED [None]
  - NAUSEA [None]
  - VOMITING [None]
  - DEHYDRATION [None]
